FAERS Safety Report 6250446-4 (Version None)
Quarter: 2009Q2

REPORT INFORMATION
  Report Type: 
  Country: None (occurrence: None)
  Receive Date: 20090630
  Receipt Date: 20090624
  Transmission Date: 20091009
  Serious: Yes (Death, Other)
  Sender: FDA-Public Use
  Company Number: PHHY2008US06918

PATIENT
  Sex: Male
  Weight: 98 kg

DRUGS (13)
  1. EXJADE [Suspect]
     Dosage: UNK, QD
     Route: 048
     Dates: start: 20071009, end: 20071029
  2. EXJADE [Suspect]
     Dosage: 500 MG
     Route: 048
     Dates: start: 20080327
  3. LANTUS [Concomitant]
     Dosage: 30 UNITS AT HS
     Dates: start: 20070725
  4. SEROQUEL [Concomitant]
     Dosage: 1-2 PRN
     Route: 048
     Dates: start: 20070618
  5. FOLIC ACID [Concomitant]
     Dosage: 1 MG, QD
     Route: 048
     Dates: start: 20070618
  6. HUMULIN R [Concomitant]
     Dates: start: 20070726
  7. ARTIFICIAL TEARS [Concomitant]
     Dosage: UNK, PRN
     Dates: start: 20071022
  8. PHENYLEPHRINE HYDROCHLORIDE [Concomitant]
     Dosage: UNK, PRN
     Dates: start: 20071022
  9. LEXAPRO [Concomitant]
     Dosage: 10 MG, QD
     Route: 048
     Dates: start: 20071210
  10. ULTRAM [Concomitant]
     Indication: PAIN
     Dosage: 10 MG, Q4-6H
     Route: 048
     Dates: start: 20080102
  11. PEG-INTRON [Concomitant]
     Dosage: 50 UG SQ Q WK
     Dates: start: 20080319
  12. NEURONTIN [Concomitant]
     Indication: NEUROPATHY PERIPHERAL
     Dosage: 300 MG, TID
     Route: 048
     Dates: start: 20080401
  13. LORTAB [Concomitant]
     Indication: PAIN
     Dosage: 10 MG EVERY 4-6 HOURS

REACTIONS (5)
  - BLOOD BILIRUBIN INCREASED [None]
  - BONE MARROW FAILURE [None]
  - HEPATIC FAILURE [None]
  - LIVER FUNCTION TEST ABNORMAL [None]
  - THROMBOCYTOPENIA [None]
